FAERS Safety Report 7800228-4 (Version None)
Quarter: 2011Q4

REPORT INFORMATION
  Report Type: 
  Country: None (occurrence: None)
  Receive Date: 20111006
  Receipt Date: 20110930
  Transmission Date: 20120403
  Serious: Yes (Other)
  Sender: FDA-Public Use
  Company Number: DE-BAXTER-2011BH029978

PATIENT
  Age: 66 Year
  Sex: Male

DRUGS (7)
  1. CARBOPLATIN [Suspect]
     Indication: GLIOBLASTOMA
     Route: 065
  2. ETOPOSIDE [Suspect]
     Indication: RECURRENT CANCER
     Route: 065
  3. IFOSFAMIDE [Suspect]
     Indication: GLIOBLASTOMA
     Route: 065
     Dates: start: 20100801
  4. ETOPOSIDE [Suspect]
     Indication: GLIOBLASTOMA
     Route: 065
  5. TEMOZOLOMIDE [Concomitant]
     Indication: GLIOBLASTOMA
     Route: 065
  6. IFOSFAMIDE [Suspect]
     Indication: RECURRENT CANCER
     Route: 065
     Dates: start: 20100801
  7. CARBOPLATIN [Suspect]
     Indication: RECURRENT CANCER
     Route: 065

REACTIONS (1)
  - PNEUMONIA [None]
